FAERS Safety Report 9316812 (Version 1)
Quarter: 2013Q2

REPORT INFORMATION
  Report Type: Spontaneous
  Country: CA (occurrence: CA)
  Receive Date: 20130530
  Receipt Date: 20130530
  Transmission Date: 20140414
  Serious: Yes (Other)
  Sender: FDA-Public Use
  Company Number: CA-ROCHE-1229732

PATIENT
  Age: 16 Year
  Sex: Female

DRUGS (2)
  1. XOLAIR [Suspect]
     Indication: ASTHMA
     Route: 058
     Dates: start: 20090831
  2. XOLAIR [Suspect]
     Route: 065
     Dates: start: 20130425

REACTIONS (5)
  - Heart rate increased [Unknown]
  - Feeling hot [Unknown]
  - Vomiting [Unknown]
  - Pallor [Unknown]
  - Fatigue [Unknown]
